FAERS Safety Report 6022315-6 (Version None)
Quarter: 2008Q4

REPORT INFORMATION
  Report Type: 
  Country: None (occurrence: None)
  Receive Date: 20081223
  Receipt Date: 20081211
  Transmission Date: 20090506
  Serious: Yes (Death, Hospitalization)
  Sender: FDA-Public Use
  Company Number: 2008003234

PATIENT
  Age: 60 Year
  Sex: Male

DRUGS (7)
  1. ERLOTINIB (ERLOTINIB) (TABLET) (ERLOTINIB) [Suspect]
     Indication: LUNG ADENOCARCINOMA
     Dosage: (150 MG, QD) ,ORAL
     Route: 048
     Dates: start: 20080813, end: 20080903
  2. OXYCONTIN [Concomitant]
  3. MORPHINE [Concomitant]
  4. RINDERON [Concomitant]
  5. BACTRAMIN (BACTRIM) [Concomitant]
  6. LOXONIN (LOXOPROFEN SODIUM) [Concomitant]
  7. MUCOSTA (REBAMIPIDE) [Concomitant]

REACTIONS (11)
  - ANOREXIA [None]
  - BLOOD CREATININE INCREASED [None]
  - BLOOD UREA INCREASED [None]
  - DERMATITIS ACNEIFORM [None]
  - DIARRHOEA [None]
  - DISEASE PROGRESSION [None]
  - DRY SKIN [None]
  - FATIGUE [None]
  - HYPOCHLORAEMIA [None]
  - HYPONATRAEMIA [None]
  - WEIGHT DECREASED [None]
